FAERS Safety Report 18025051 (Version 24)
Quarter: 2025Q3

REPORT INFORMATION
  Report Type: Spontaneous
  Country: US (occurrence: US)
  Receive Date: 20200715
  Receipt Date: 20250821
  Transmission Date: 20251021
  Serious: Yes (Hospitalization, Other)
  Sender: PFIZER
  Company Number: US-PFIZER INC-2020270476

PATIENT
  Age: 82 Year
  Sex: Female

DRUGS (6)
  1. XELJANZ XR [Suspect]
     Active Substance: TOFACITINIB CITRATE
     Indication: Rheumatoid arthritis
     Dosage: 11 MG, 1X/DAY
     Route: 048
     Dates: start: 201504
  2. XELJANZ XR [Suspect]
     Active Substance: TOFACITINIB CITRATE
  3. GABAPENTIN [Concomitant]
     Active Substance: GABAPENTIN
  4. MELOXICAM [Concomitant]
     Active Substance: MELOXICAM
  5. TYLENOL [Concomitant]
     Active Substance: ACETAMINOPHEN
  6. CALCIUM [Concomitant]
     Active Substance: CALCIUM

REACTIONS (14)
  - Illness [Unknown]
  - Spinal fracture [Unknown]
  - Clavicle fracture [Unknown]
  - Pulmonary bullectomy [Unknown]
  - Upper limb fracture [Unknown]
  - Malaise [Not Recovered/Not Resolved]
  - Dementia [Unknown]
  - Osteoporosis [Unknown]
  - Nervousness [Unknown]
  - Sensitivity to weather change [Unknown]
  - Pain [Not Recovered/Not Resolved]
  - Nausea [Unknown]
  - Osteoarthritis [Unknown]
  - Spinal osteoarthritis [Unknown]

NARRATIVE: CASE EVENT DATE: 20210101
